FAERS Safety Report 13226066 (Version 2)
Quarter: 2018Q1

REPORT INFORMATION
  Report Type: Spontaneous
  Country: US (occurrence: US)
  Receive Date: 20170213
  Receipt Date: 20180206
  Transmission Date: 20180508
  Serious: Yes (Other)
  Sender: FDA-Public Use
  Company Number: US-ALEXION PHARMACEUTICALS INC.-A201701295

PATIENT
  Age: 38 Year
  Sex: Female

DRUGS (3)
  1. SOLIRIS [Suspect]
     Active Substance: ECULIZUMAB
     Indication: ATYPICAL HAEMOLYTIC URAEMIC SYNDROME
     Dosage: UNK, EVERY 10 DAYS
     Route: 042
     Dates: start: 20141029
  2. SOLIRIS [Suspect]
     Active Substance: ECULIZUMAB
     Dosage: 1200 MG, Q2W
     Route: 042
     Dates: end: 20170203
  3. SOLIRIS [Suspect]
     Active Substance: ECULIZUMAB
     Dosage: 1200MG, Q2W
     Route: 065

REACTIONS (2)
  - Splenic thrombosis [Unknown]
  - Headache [Unknown]

NARRATIVE: CASE EVENT DATE: 20170203
